FAERS Safety Report 19485227 (Version 1)
Quarter: 2021Q3

REPORT INFORMATION
  Report Type: Spontaneous
  Country: CN (occurrence: CN)
  Receive Date: 20210702
  Receipt Date: 20210702
  Transmission Date: 20211014
  Serious: Yes (Hospitalization, Other)
  Sender: FDA-Public Use
  Company Number: CN-009507513-2106CHN008068

PATIENT
  Age: 71 Year
  Sex: Female

DRUGS (1)
  1. TIENAM [Suspect]
     Active Substance: CILASTATIN SODIUM\IMIPENEM
     Indication: INFECTION
     Dosage: 2 G, 3 TIMES A DAY
     Route: 041
     Dates: start: 20210623, end: 20210625

REACTIONS (6)
  - Vitreous floaters [Unknown]
  - Dysphoria [Unknown]
  - Dementia [Unknown]
  - Abnormal dreams [Unknown]
  - Poor quality sleep [Unknown]
  - Overdose [Unknown]

NARRATIVE: CASE EVENT DATE: 20210623
